FAERS Safety Report 4883038-X (Version None)
Quarter: 2006Q1

REPORT INFORMATION
  Report Type: 
  Country: None (occurrence: None)
  Receive Date: 20060113
  Receipt Date: 20051226
  Transmission Date: 20060701
  Serious: Yes (Hospitalization)
  Sender: FDA-Public Use
  Company Number: JP200512004130

PATIENT
  Age: 76 Year
  Sex: Female

DRUGS (3)
  1. RALOXIFENE HCL [Suspect]
     Indication: OSTEOPOROSIS POSTMENOPAUSAL
     Dosage: 60 MG, DAILY (1/D), ORAL
     Route: 048
  2. ONE-ALPHA (ALFACALCIDOL) [Concomitant]
  3. ASPARA-CA (ASPARATE CALCIUM) [Concomitant]

REACTIONS (2)
  - FALL [None]
  - SPINAL COMPRESSION FRACTURE [None]
